FAERS Safety Report 6541170-9 (Version None)
Quarter: 2010Q1

REPORT INFORMATION
  Report Type: 
  Country: None (occurrence: None)
  Receive Date: 20100118
  Receipt Date: 20100114
  Transmission Date: 20100710
  Serious: Yes (Other)
  Sender: FDA-Public Use
  Company Number: A0839762A

PATIENT

DRUGS (3)
  1. WELLBUTRIN [Suspect]
     Indication: DRUG USE FOR UNKNOWN INDICATION
     Route: 065
  2. NICOTINE [Suspect]
     Indication: SMOKING CESSATION THERAPY
     Route: 002
  3. NICOTINE [Suspect]
     Indication: SMOKING CESSATION THERAPY
     Route: 062

REACTIONS (3)
  - DRUG INEFFECTIVE [None]
  - HOMICIDAL IDEATION [None]
  - SUICIDAL IDEATION [None]
